FAERS Safety Report 9359397 (Version 2)
Quarter: 2013Q2

REPORT INFORMATION
  Report Type: Spontaneous
  Country: US (occurrence: US)
  Receive Date: 20130620
  Receipt Date: 20130626
  Transmission Date: 20140414
  Serious: Yes (Other)
  Sender: FDA-Public Use
  Company Number: US-ASTRAZENECA-2013SE46421

PATIENT
  Age: 71 Year
  Sex: Male

DRUGS (2)
  1. BRILINTA [Suspect]
     Indication: STENT PLACEMENT
     Route: 048
     Dates: start: 20130530
  2. BRILINTA [Suspect]
     Indication: STENT PLACEMENT
     Route: 048

REACTIONS (2)
  - Thrombocytopenia [Unknown]
  - Dyspnoea [Recovered/Resolved]
